FAERS Safety Report 23673276 (Version 2)
Quarter: 2024Q1

REPORT INFORMATION
  Report Type: Spontaneous
  Country: US (occurrence: US)
  Receive Date: 20240326
  Receipt Date: 20240326
  Transmission Date: 20240410
  Serious: Yes (Hospitalization, Other)
  Sender: FDA-Public Use
  Company Number: US-CTI BIOPHARMA-2024US04510

PATIENT
  Age: 74 Year
  Sex: Male

DRUGS (1)
  1. VONJO [Suspect]
     Active Substance: PACRITINIB
     Indication: Myelofibrosis
     Dosage: 200 MG, BID
     Route: 048
     Dates: start: 20230629

REACTIONS (13)
  - Pneumonia [Recovered/Resolved]
  - Drug hypersensitivity [Recovered/Resolved]
  - Wound haemorrhage [Recovered/Resolved]
  - Dizziness [Unknown]
  - Fall [Unknown]
  - Bronchitis [Unknown]
  - Full blood count abnormal [Unknown]
  - Prostatic disorder [Unknown]
  - Haemoglobin decreased [Unknown]
  - Emotional distress [Unknown]
  - Product dose omission issue [Unknown]
  - Immunodeficiency [Unknown]
  - Therapeutic response decreased [Unknown]

NARRATIVE: CASE EVENT DATE: 20240212
